FAERS Safety Report 7451051-4 (Version None)
Quarter: 2011Q2

REPORT INFORMATION
  Report Type: 
  Country: None (occurrence: None)
  Receive Date: 20110422
  Receipt Date: 20110413
  Transmission Date: 20111010
  Serious: Yes (Other)
  Sender: FDA-Public Use
  Company Number: ACO_23264_2011

PATIENT
  Age: 64 Year
  Sex: Male

DRUGS (3)
  1. ROPINIROLE [Concomitant]
  2. AMPYRA [Suspect]
     Indication: MULTIPLE SCLEROSIS
     Dosage: 10 MG, BID,  ORAL
     Route: 048
     Dates: start: 20100927
  3. ENALAPRIL MALEATE [Concomitant]

REACTIONS (1)
  - THROAT CANCER [None]
